FAERS Safety Report 6254940-1 (Version None)
Quarter: 2009Q3

REPORT INFORMATION
  Report Type: 
  Country: None (occurrence: None)
  Receive Date: 20090702
  Receipt Date: 20090620
  Transmission Date: 20100115
  Serious: Yes (Other)
  Sender: FDA-Public Use
  Company Number: US-PFIZER INC-2009223508

PATIENT
  Age: 13 Year
  Sex: Male
  Weight: 38.549 kg

DRUGS (5)
  1. GEODON [Suspect]
     Indication: AFFECTIVE DISORDER
     Dosage: 120 MG, UNK
     Route: 048
  2. GEODON [Suspect]
     Indication: ASPERGER'S DISORDER
  3. ADDERALL XR 20 [Concomitant]
  4. CELEXA [Concomitant]
     Dates: start: 20090201
  5. TENEX [Concomitant]
     Dosage: 1 MG,

REACTIONS (3)
  - ATHETOSIS [None]
  - TARDIVE DYSKINESIA [None]
  - TIC [None]
